FAERS Safety Report 4997057-6 (Version None)
Quarter: 2006Q2

REPORT INFORMATION
  Report Type: 
  Country: None (occurrence: None)
  Receive Date: 20060508
  Receipt Date: 20060508
  Transmission Date: 20061013
  Serious: No
  Sender: FDA-Public Use
  Company Number: None

PATIENT
  Age: 13 Year
  Sex: Male
  Weight: 48 kg

DRUGS (1)
  1. VANCOMYCIN [Suspect]
     Indication: CELLULITIS
     Dosage: 650 MG IV Q8H
     Route: 042
     Dates: start: 20060503, end: 20060504

REACTIONS (3)
  - HEADACHE [None]
  - INFUSION RELATED REACTION [None]
  - TINNITUS [None]
